FAERS Safety Report 8941590 (Version 2)
Quarter: 2012Q4

REPORT INFORMATION
  Report Type: 
  Country: US (occurrence: US)
  Receive Date: 20121203
  Receipt Date: 20121214
  Transmission Date: 20130627
  Serious: Yes (Other)
  Sender: FDA-Public Use
  Company Number: US-PFIZER INC-2012302161

PATIENT
  Age: 43 Year
  Sex: Male
  Weight: 74.83 kg

DRUGS (1)
  1. LYRICA [Suspect]
     Indication: FIBROMYALGIA
     Dosage: 75 mg, daily
     Dates: start: 20121126

REACTIONS (2)
  - Palpitations [Recovered/Resolved]
  - Panic attack [Recovered/Resolved]
